FAERS Safety Report 7005282-8 (Version None)
Quarter: 2010Q3

REPORT INFORMATION
  Report Type: 
  Country: None (occurrence: None)
  Receive Date: 20100920
  Receipt Date: 20100920
  Transmission Date: 20110219
  Serious: No
  Sender: FDA-Public Use
  Company Number: None

PATIENT
  Sex: Male

DRUGS (1)
  1. PHENTOLAMINE MESYLATE [Suspect]
     Dosage: 2.7ML ONCE DENTAL
     Route: 004
     Dates: start: 20100817, end: 20100818

REACTIONS (3)
  - FATIGUE [None]
  - INJECTION SITE PAIN [None]
  - URINE COLOUR ABNORMAL [None]
